FAERS Safety Report 7626572-1 (Version None)
Quarter: 2011Q3

REPORT INFORMATION
  Report Type: 
  Country: None (occurrence: None)
  Receive Date: 20110721
  Receipt Date: 20110713
  Transmission Date: 20111222
  Serious: Yes (Life-Threatening)
  Sender: FDA-Public Use
  Company Number: JP-GLAXOSMITHKLINE-B0727057A

PATIENT
  Sex: Female

DRUGS (7)
  1. AMLODIPINE [Concomitant]
     Route: 048
     Dates: start: 20110510, end: 20110601
  2. DOXAZOSIN MESYLATE [Concomitant]
     Route: 048
     Dates: start: 20110510, end: 20110601
  3. THEO-DUR [Concomitant]
     Route: 048
     Dates: start: 20110510, end: 20110601
  4. PRAVASTATIN SODIUM [Concomitant]
     Route: 048
     Dates: start: 20110510, end: 20110601
  5. CANDESARTAN CILEXETIL [Concomitant]
     Route: 048
     Dates: start: 20110510, end: 20110601
  6. VALTREX [Suspect]
     Indication: PRODUCT USED FOR UNKNOWN INDICATION
     Dosage: 1000MG PER DAY
     Route: 048
     Dates: start: 20110601, end: 20110602
  7. OLOPATADINE HCL [Concomitant]
     Route: 048
     Dates: start: 20110510, end: 20110601

REACTIONS (1)
  - SHOCK [None]
